FAERS Safety Report 6888117-3 (Version None)
Quarter: 2010Q3

REPORT INFORMATION
  Report Type: 
  Country: None (occurrence: None)
  Receive Date: 20100723
  Receipt Date: 20100702
  Transmission Date: 20110219
  Serious: Yes (Hospitalization, Other)
  Sender: FDA-Public Use
  Company Number: GER/UKI/10/0014009

PATIENT
  Age: 57 Year
  Sex: Female

DRUGS (9)
  1. CLOPIDOGREL [Suspect]
     Indication: ANTICOAGULANT THERAPY
     Dosage: 75 MG, 1 IN 1 D
  2. ASPIRIN [Suspect]
     Indication: PRODUCT USED FOR UNKNOWN INDICATION
     Dosage: 75 MG, 1 IN 1 D
  3. ASPIRIN [Suspect]
     Indication: ANTICOAGULANT THERAPY
  4. CHEMOTHERAPY (CHEMOTHERAPEUTICS NOS) [Suspect]
     Indication: PRODUCT USED FOR UNKNOWN INDICATION
  5. BISOPROLOL FUMARATE [Concomitant]
  6. ISOSORBIDE MONONITRATE [Concomitant]
  7. OMEPRAZOLE [Concomitant]
  8. SIMVASTATIN [Concomitant]
  9. TIBOLONE (TIBOLONS) [Concomitant]

REACTIONS (3)
  - DYSPNOEA EXERTIONAL [None]
  - LARGE INTESTINAL HAEMORRHAGE [None]
  - SYNCOPE [None]
